FAERS Safety Report 24663243 (Version 1)
Quarter: 2024Q4

REPORT INFORMATION
  Report Type: 
  Country: AU (occurrence: AU)
  Receive Date: 20241126
  Receipt Date: 20241126
  Transmission Date: 20250115
  Serious: Yes (Other)
  Sender: CELLTRION
  Company Number: AU-CELLTRION INC.-2024AU029479

PATIENT

DRUGS (1)
  1. RITUXIMAB [Suspect]
     Active Substance: RITUXIMAB
     Indication: Product used for unknown indication

REACTIONS (7)
  - Syncope [Unknown]
  - Thrombocytopenia [Unknown]
  - Oral discomfort [Unknown]
  - Periorbital swelling [Unknown]
  - Erythema [Unknown]
  - Pyrexia [Unknown]
  - Vomiting [Unknown]
